FAERS Safety Report 18405710 (Version 11)
Quarter: 2022Q1

REPORT INFORMATION
  Report Type: Spontaneous
  Country: GB (occurrence: GB)
  Receive Date: 20201020
  Receipt Date: 20220111
  Transmission Date: 20220424
  Serious: Yes (Other)
  Sender: FDA-Public Use
  Company Number: GB-BRISTOL-MYERS SQUIBB COMPANY-BMS-2020-080474

PATIENT
  Age: 43 Year
  Sex: Male
  Weight: 101 kg

DRUGS (23)
  1. DOCETAXEL [Suspect]
     Active Substance: DOCETAXEL
     Indication: Oesophageal squamous cell carcinoma
     Dosage: UNK
     Route: 065
     Dates: start: 201409, end: 201501
  2. DOCETAXEL [Suspect]
     Active Substance: DOCETAXEL
     Dosage: UNK
  3. CISPLATIN [Suspect]
     Active Substance: CISPLATIN
     Indication: Oesophageal squamous cell carcinoma
     Dosage: 800 MILLIGRAM,DAILY
     Route: 065
     Dates: start: 201409, end: 201501
  4. CISPLATIN [Suspect]
     Active Substance: CISPLATIN
     Dosage: 800 MILLIGRAM
     Dates: start: 202003, end: 202009
  5. CISPLATIN [Suspect]
     Active Substance: CISPLATIN
     Dosage: 800 MILLIGRAM, QD
     Dates: start: 20210217
  6. CISPLATIN [Suspect]
     Active Substance: CISPLATIN
     Dosage: UNK
     Dates: start: 201905, end: 201906
  7. CISPLATIN [Suspect]
     Active Substance: CISPLATIN
     Dosage: 800 MILLIGRAM, QD
     Route: 065
     Dates: start: 202003, end: 202003
  8. CISPLATIN [Suspect]
     Active Substance: CISPLATIN
     Dosage: UNK
     Dates: start: 201903, end: 201906
  9. FLUOROURACIL [Suspect]
     Active Substance: FLUOROURACIL
     Indication: Oesophageal squamous cell carcinoma
     Dosage: UNK
     Route: 065
     Dates: start: 201409, end: 201501
  10. FLUOROURACIL [Suspect]
     Active Substance: FLUOROURACIL
     Dosage: UNK
     Route: 065
     Dates: start: 202003, end: 202009
  11. FLUOROURACIL [Suspect]
     Active Substance: FLUOROURACIL
     Dosage: 800 MILLIGRAM, QD
     Route: 065
     Dates: start: 20210217
  12. OXALIPLATIN [Suspect]
     Active Substance: OXALIPLATIN
     Indication: Oesophageal squamous cell carcinoma
     Dosage: UNK (??-MAR-2020-START DATE)
     Route: 065
     Dates: end: 202009
  13. OXALIPLATIN [Suspect]
     Active Substance: OXALIPLATIN
     Dosage: 800 MILLIGRAM, QD
     Dates: start: 20210217
  14. OXALIPLATIN [Suspect]
     Active Substance: OXALIPLATIN
     Dosage: UNK
  15. PACLITAXEL [Suspect]
     Active Substance: PACLITAXEL
     Indication: Oesophageal squamous cell carcinoma
     Dosage: UNK
     Route: 065
     Dates: start: 201905, end: 201906
  16. PACLITAXEL [Suspect]
     Active Substance: PACLITAXEL
     Dosage: UNK
  17. FLUOROURACIL\LEUCOVORIN CALCIUM\OXALIPLATIN [Suspect]
     Active Substance: FLUOROURACIL\LEUCOVORIN CALCIUM\OXALIPLATIN
     Indication: Oesophageal squamous cell carcinoma
     Dosage: UNK (??-MAR-2020)
     Route: 065
     Dates: end: 202009
  18. CARBOPLATIN [Suspect]
     Active Substance: CARBOPLATIN
     Indication: Oesophageal squamous cell carcinoma
     Dosage: UNK
     Route: 065
     Dates: start: 201905, end: 201906
  19. CARBOPLATIN [Suspect]
     Active Substance: CARBOPLATIN
     Dosage: UNK
  20. LEUCOVORIN [Suspect]
     Active Substance: LEUCOVORIN
     Indication: Oesophageal squamous cell carcinoma
     Dosage: UNK (??-MAR-2020)
     Route: 065
     Dates: end: 202009
  21. LEUCOVORIN [Suspect]
     Active Substance: LEUCOVORIN
     Dosage: UNK
     Route: 065
     Dates: start: 202003, end: 202009
  22. LEUCOVORIN CALCIUM [Suspect]
     Active Substance: LEUCOVORIN CALCIUM
     Indication: Oesophageal squamous cell carcinoma
     Dosage: UNK (??-MAR-2020)
     Route: 065
     Dates: end: 202009
  23. FLUOROURACIL [Concomitant]
     Active Substance: FLUOROURACIL
     Indication: Chemotherapy
     Dosage: 800 MILLIGRAM, QD (17-FEB-2021)
     Route: 042

REACTIONS (5)
  - Malignant neoplasm progression [Unknown]
  - Neuropathy peripheral [Not Recovered/Not Resolved]
  - Neoplasm progression [Unknown]
  - Off label use [Unknown]
  - Product use in unapproved indication [Unknown]

NARRATIVE: CASE EVENT DATE: 20200101
